FAERS Safety Report 23822266 (Version 1)
Quarter: 2024Q2

REPORT INFORMATION
  Report Type: Spontaneous
  Country: CA (occurrence: CA)
  Receive Date: 20240506
  Receipt Date: 20240506
  Transmission Date: 20240715
  Serious: Yes (Other)
  Sender: FDA-Public Use
  Company Number: CA-SANDOZ-SDZ2024CA045240

PATIENT
  Age: 84 Year
  Sex: Male

DRUGS (8)
  1. HYDROXYCHLOROQUINE [Suspect]
     Active Substance: HYDROXYCHLOROQUINE
     Indication: Rheumatoid arthritis
     Route: 065
  2. METHOTREXATE SODIUM [Suspect]
     Active Substance: METHOTREXATE SODIUM
     Indication: Rheumatoid arthritis
     Route: 065
  3. PREDNISOLONE [Suspect]
     Active Substance: PREDNISOLONE
     Indication: Rash
     Dosage: 15 MG
     Route: 065
  4. PREDNISOLONE [Suspect]
     Active Substance: PREDNISOLONE
     Indication: Rheumatoid arthritis
     Dosage: 30 MG
     Route: 065
  5. PREDNISOLONE [Suspect]
     Active Substance: PREDNISOLONE
     Indication: Vasculitis
     Dosage: 30 MG
     Route: 065
  6. SULFASALAZINE [Suspect]
     Active Substance: SULFASALAZINE
     Indication: Vasculitis
     Route: 065
  7. SULFASALAZINE [Suspect]
     Active Substance: SULFASALAZINE
     Indication: Rheumatoid arthritis
  8. TOFACITINIB [Suspect]
     Active Substance: TOFACITINIB
     Indication: Neuropathy peripheral
     Route: 065

REACTIONS (2)
  - Borderline leprosy [Recovered/Resolved]
  - Type 1 lepra reaction [Recovered/Resolved]
